FAERS Safety Report 15093482 (Version 8)
Quarter: 2018Q4

REPORT INFORMATION
  Report Type: Spontaneous
  Country: DE (occurrence: DE)
  Receive Date: 20180629
  Receipt Date: 20181109
  Transmission Date: 20190204
  Serious: Yes (Death, Life-Threatening, Hospitalization, Disabling)
  Sender: FDA-Public Use
  Company Number: DE-CELGENEUS-DEU-20180600043

PATIENT
  Age: 77 Year
  Sex: Male
  Weight: 61 kg

DRUGS (45)
  1. ROSUVASTATIN. [Concomitant]
     Active Substance: ROSUVASTATIN
     Indication: PROPHYLAXIS
  2. IMIPENEM [Concomitant]
     Active Substance: IMIPENEM
     Indication: CHOLECYSTITIS
  3. LITALIR [Concomitant]
     Active Substance: HYDROXYUREA
     Indication: LEUKOCYTOSIS
     Dosage: 1 GRAM
     Route: 048
     Dates: start: 20180526, end: 20180529
  4. PANTOZOL [Concomitant]
     Active Substance: PANTOPRAZOLE SODIUM
     Indication: DYSPEPSIA
     Dosage: 80 MILLIGRAM
     Route: 048
     Dates: start: 20180512, end: 20180627
  5. MIRTAZAPIN [Concomitant]
     Active Substance: MIRTAZAPINE
     Indication: SLEEP DISORDER
     Dosage: 15 MILLIGRAM
     Route: 048
     Dates: start: 20180524, end: 20180606
  6. MIRTAZAPIN [Concomitant]
     Active Substance: MIRTAZAPINE
     Dosage: 30 MILLIGRAM
     Route: 048
     Dates: start: 20180607, end: 20180627
  7. AZACITIDINE. [Suspect]
     Active Substance: AZACITIDINE
     Indication: ACUTE MYELOID LEUKAEMIA
     Dosage: 75 MILLIGRAM/SQ. METER
     Route: 058
     Dates: start: 20180503, end: 20180610
  8. RASBURICASE [Concomitant]
     Active Substance: RASBURICASE
     Indication: PROPHYLAXIS
     Dosage: 4.5 GRAM
     Route: 041
     Dates: start: 20180525, end: 20180527
  9. FRESUBIN [Concomitant]
     Active Substance: AMINO ACIDS\DEXTROSE\ELECTROLYTES NOS\SOYBEAN OIL\VITAMINS
     Indication: MEDICAL DIET
     Dosage: 4 DOSAGE FORMS
     Route: 048
     Dates: start: 20180602, end: 20180604
  10. MOVICOL [Concomitant]
     Active Substance: POLYETHYLENE GLYCOL 3350\POTASSIUM CHLORIDE\SODIUM BICARBONATE\SODIUM CHLORIDE
     Indication: CONSTIPATION
     Dosage: 1 DOSAGE FORMS
     Route: 048
     Dates: start: 20180608, end: 20180627
  11. TRIAM GALEN CREME [Concomitant]
     Indication: NEURODERMATITIS
     Route: 061
     Dates: start: 2008, end: 20180627
  12. VENETOCLAX. [Concomitant]
     Active Substance: VENETOCLAX
     Indication: ACUTE MYELOID LEUKAEMIA
     Route: 065
  13. VANCOMYCIN [Concomitant]
     Active Substance: VANCOMYCIN
     Indication: ANTIBIOTIC THERAPY
     Route: 065
     Dates: start: 20180527, end: 20180528
  14. PARACETAMOL [Concomitant]
     Active Substance: ACETAMINOPHEN
     Indication: ANALGESIC THERAPY
     Dosage: 1 GRAM
     Route: 041
     Dates: start: 20180525, end: 20180604
  15. AMPHO MORONAL [Concomitant]
     Active Substance: AMPHOTERICIN B
     Indication: ANTIFUNGAL PROPHYLAXIS
     Dosage: 1 MILLILITER
     Route: 048
     Dates: start: 20180427
  16. LITALIR [Concomitant]
     Active Substance: HYDROXYUREA
     Dosage: 1 GRAM
     Route: 048
     Dates: start: 20180425, end: 20180503
  17. RIOPAN [Concomitant]
     Indication: DYSPEPSIA
     Dosage: 20 MILLILITER
     Route: 048
     Dates: start: 20180508, end: 20180607
  18. METOCLOPRAMIDE. [Concomitant]
     Active Substance: METOCLOPRAMIDE
     Indication: NAUSEA
     Route: 041
     Dates: start: 20180525, end: 20180604
  19. NOVALGIN (CAFFEINE\PARACETAMOL\PROPYPHENAZONE) [Concomitant]
     Active Substance: ACETAMINOPHEN\CAFFEINE\PROPYPHENAZONE
     Indication: ANALGESIC THERAPY
     Dosage: 1 GRAM
     Route: 041
     Dates: start: 20180525, end: 20180604
  20. NOVALGIN (CAFFEINE\PARACETAMOL\PROPYPHENAZONE) [Concomitant]
     Active Substance: ACETAMINOPHEN\CAFFEINE\PROPYPHENAZONE
     Dosage: 30 TO MAXIMUM 90 DROPS
     Route: 048
     Dates: start: 20180525, end: 20180604
  21. ALUMINIUM HYDROXID [Concomitant]
     Indication: DYSPEPSIA
     Dosage: 900 MILLIGRAM
     Route: 048
     Dates: start: 20180525, end: 20180604
  22. ALUMINIUM HYDROXID [Concomitant]
     Indication: HYPERPHOSPHATAEMIA
  23. FRESUBIN [Concomitant]
     Active Substance: AMINO ACIDS\DEXTROSE\ELECTROLYTES NOS\SOYBEAN OIL\VITAMINS
     Indication: CACHEXIA
     Dosage: 2 DOSAGE FORMS
     Route: 048
     Dates: start: 20180610, end: 20180620
  24. ACICLOVIR [Concomitant]
     Active Substance: ACYCLOVIR
     Indication: HERPES SIMPLEX
     Route: 065
     Dates: start: 20180616, end: 20180620
  25. PANTOZOL [Concomitant]
     Active Substance: PANTOPRAZOLE SODIUM
     Indication: GASTRITIS PROPHYLAXIS
     Dosage: 80 MILLIGRAM
     Route: 048
     Dates: start: 20180508, end: 20180511
  26. ALLOPURINOL. [Concomitant]
     Active Substance: ALLOPURINOL
     Indication: TUMOUR LYSIS SYNDROME
     Dosage: 100 MILLIGRAM
     Route: 048
     Dates: start: 20180427, end: 20180501
  27. ALLOPURINOL. [Concomitant]
     Active Substance: ALLOPURINOL
     Route: 048
     Dates: start: 20180525, end: 20180603
  28. CLOPIDOGREL [Concomitant]
     Active Substance: CLOPIDOGREL BISULFATE
     Indication: PLATELET AGGREGATION INHIBITION
     Dosage: 75 MILLIGRAM
     Route: 048
     Dates: start: 20180514, end: 20180627
  29. IMIPENEM [Concomitant]
     Active Substance: IMIPENEM
     Indication: FEBRILE NEUTROPENIA
     Dosage: 500 MILLIGRAM
     Route: 041
     Dates: start: 20180527, end: 20180602
  30. IMIPENEM [Concomitant]
     Active Substance: IMIPENEM
     Indication: ANTIBIOTIC THERAPY
     Route: 065
  31. FRESUBIN [Concomitant]
     Active Substance: AMINO ACIDS\DEXTROSE\ELECTROLYTES NOS\SOYBEAN OIL\VITAMINS
     Dosage: 60ML/H
     Route: 048
     Dates: start: 20180622, end: 20180626
  32. LITALIR [Concomitant]
     Active Substance: HYDROXYUREA
     Indication: CYTOREDUCTIVE SURGERY
     Dosage: 500 MILLIGRAM
     Route: 048
     Dates: start: 20180416, end: 20180422
  33. PANTOZOL [Concomitant]
     Active Substance: PANTOPRAZOLE SODIUM
     Dosage: 40 MILLIGRAM
     Route: 048
     Dates: start: 20180512, end: 20180627
  34. VANCOMYCIN [Concomitant]
     Active Substance: VANCOMYCIN
     Route: 065
  35. ALLOPURINOL. [Concomitant]
     Active Substance: ALLOPURINOL
     Route: 048
     Dates: start: 20180604, end: 20180615
  36. ROSUVASTATIN. [Concomitant]
     Active Substance: ROSUVASTATIN
     Indication: HYPERLIPIDAEMIA
     Dosage: 20 MILLIGRAM
     Route: 048
     Dates: start: 20130901, end: 20180627
  37. IMIPENEM [Concomitant]
     Active Substance: IMIPENEM
     Indication: SEPSIS
  38. LITALIR [Concomitant]
     Active Substance: HYDROXYUREA
     Dosage: 1 GRAM
     Route: 048
     Dates: start: 20180529, end: 20180530
  39. RIOPAN [Concomitant]
     Dosage: 10 MILLILITER
     Route: 048
     Dates: start: 20180427, end: 20180607
  40. VANCOMYCIN [Concomitant]
     Active Substance: VANCOMYCIN
     Indication: FEBRILE NEUTROPENIA
     Route: 065
     Dates: start: 20180528, end: 20180530
  41. ALLOPURINOL. [Concomitant]
     Active Substance: ALLOPURINOL
     Indication: BLOOD URIC ACID INCREASED
     Dosage: 300 MILLIGRAM
     Route: 048
     Dates: start: 20180502, end: 20180505
  42. ALLOPURINOL. [Concomitant]
     Active Substance: ALLOPURINOL
     Indication: PROPHYLAXIS
     Route: 048
     Dates: start: 20180506, end: 20180524
  43. LITALIR [Concomitant]
     Active Substance: HYDROXYUREA
     Dosage: 1 GRAM
     Route: 048
     Dates: start: 20180601, end: 20180603
  44. LITALIR [Concomitant]
     Active Substance: HYDROXYUREA
     Dosage: 1 GRAM
     Route: 048
     Dates: start: 20180530, end: 20180601
  45. KALINOR (POTASSIUM CHLORIDE) [Concomitant]
     Active Substance: POTASSIUM CHLORIDE
     Indication: HYPOKALAEMIA
     Route: 065

REACTIONS (5)
  - Multiple organ dysfunction syndrome [Fatal]
  - Sepsis [Recovered/Resolved]
  - Systemic inflammatory response syndrome [Fatal]
  - Febrile neutropenia [Recovered/Resolved]
  - Cholecystitis [Recovered/Resolved]

NARRATIVE: CASE EVENT DATE: 20180524
